FAERS Safety Report 8375756-6 (Version None)
Quarter: 2012Q1

REPORT INFORMATION
  Report Type: 
  Country: None (occurrence: None)
  Receive Date: 20120323
  Receipt Date: 20111121
  Transmission Date: 20120608
  Serious: Yes (Other)
  Sender: FDA-Public Use
  Company Number: 163-21880-11110596

PATIENT
  Age: 70 Year
  Sex: Female
  Weight: 46.6298 kg

DRUGS (3)
  1. PREDNISONE TAB [Concomitant]
  2. REVLIMID [Suspect]
     Indication: MYELODYSPLASTIC SYNDROME
     Dosage: 10 MG, QD X 28 DAYS, PO, 5 MG, X 28 DAYS, PO
     Route: 048
     Dates: start: 20110901, end: 20111001
  3. REVLIMID [Suspect]
     Indication: MYELODYSPLASTIC SYNDROME
     Dosage: 10 MG, QD X 28 DAYS, PO, 5 MG, X 28 DAYS, PO
     Route: 048
     Dates: start: 20111101

REACTIONS (4)
  - SWELLING FACE [None]
  - RHINORRHOEA [None]
  - ORAL PAIN [None]
  - NASOPHARYNGITIS [None]
